FAERS Safety Report 6055892-X (Version None)
Quarter: 2009Q1

REPORT INFORMATION
  Report Type: 
  Country: None (occurrence: None)
  Receive Date: 20090128
  Receipt Date: 20090119
  Transmission Date: 20090719
  Serious: Yes (Other)
  Sender: FDA-Public Use
  Company Number: PHNU2007DE03864

PATIENT
  Age: 73 Year
  Sex: Female

DRUGS (1)
  1. FEMARA [Suspect]
     Indication: BREAST CANCER
     Dosage: 2.5 MG, QD
     Route: 048
     Dates: start: 20060101, end: 20090101

REACTIONS (6)
  - ARTHRALGIA [None]
  - ARTHROPATHY [None]
  - ARTHROSCOPY [None]
  - FALL [None]
  - FATIGUE [None]
  - MENISCUS LESION [None]
